FAERS Safety Report 16211929 (Version 1)
Quarter: 2019Q2

REPORT INFORMATION
  Report Type: Spontaneous
  Country: FR (occurrence: FR)
  Receive Date: 20190418
  Receipt Date: 20190418
  Transmission Date: 20190711
  Serious: Yes (Other)
  Sender: FDA-Public Use
  Company Number: FR-AUROBINDO-AUR-APL-2019-019295

PATIENT

DRUGS (7)
  1. CLAVULANIC ACID [Suspect]
     Active Substance: CLAVULANIC ACID
     Indication: PNEUMONIA
     Dosage: 375 MILLIGRAM, ONCE A DAY
     Route: 048
     Dates: start: 20190131, end: 20190203
  2. AMOXICILLIN+CLAVULANIC ACID ARROW [Suspect]
     Active Substance: AMOXICILLIN\CLAVULANIC ACID
     Indication: PNEUMONIA
     Dosage: 6 DOSAGE FORM, ONCE A DAY
     Route: 048
     Dates: start: 20190207, end: 20190211
  3. AMOXICILLINE PANPHARMA [Suspect]
     Active Substance: AMOXICILLIN
     Indication: PNEUMONIA
     Dosage: 3 DOSAGE FORM, ONCE A DAY
     Route: 041
     Dates: start: 20190205, end: 20190206
  4. AMOXICILLIN. [Suspect]
     Active Substance: AMOXICILLIN
     Indication: PNEUMONIA
     Dosage: 3 GRAM, ONCE A DAY
     Route: 048
     Dates: start: 20190131, end: 20190203
  5. AMOXICILLINE/ACIDE CLAVULANIQUE SANDOZ [Suspect]
     Active Substance: AMOXICILLIN\CLAVULANIC ACID
     Indication: PNEUMONIA
     Dosage: 6 DOSAGE FORM, ONCE A DAY
     Route: 041
     Dates: start: 20190205, end: 20190206
  6. SKENAN [Suspect]
     Active Substance: MORPHINE SULFATE
     Indication: PAIN
     Dosage: 2 DOSAGE FORM, ONCE A DAY
     Route: 048
     Dates: start: 20190206, end: 20190210
  7. DALACINE [Suspect]
     Active Substance: CLINDAMYCIN
     Indication: PNEUMONIA
     Route: 048
     Dates: start: 20190207, end: 20190211

REACTIONS (3)
  - Blood alkaline phosphatase increased [Recovering/Resolving]
  - Transaminases increased [Recovering/Resolving]
  - Gamma-glutamyltransferase increased [Recovering/Resolving]

NARRATIVE: CASE EVENT DATE: 20190203
